FAERS Safety Report 5387208-6 (Version None)
Quarter: 2007Q3

REPORT INFORMATION
  Report Type: 
  Country: None (occurrence: None)
  Receive Date: 20070711
  Receipt Date: 20070629
  Transmission Date: 20080115
  Serious: Yes (Hospitalization)
  Sender: FDA-Public Use
  Company Number: CAP07000276

PATIENT
  Age: 64 Year
  Sex: Female
  Weight: 55.5 kg

DRUGS (1)
  1. ACTONEL [Suspect]
     Indication: OSTEOPOROSIS PROPHYLAXIS
     Dosage: 35 MG, 1 /WEEK, ORAL
     Route: 048
     Dates: start: 20050701, end: 20070507

REACTIONS (1)
  - GASTROINTESTINAL HAEMORRHAGE [None]
